FAERS Safety Report 14340816 (Version 2)
Quarter: 2018Q1

REPORT INFORMATION
  Report Type: Spontaneous
  Country: US (occurrence: US)
  Receive Date: 20180102
  Receipt Date: 20180103
  Transmission Date: 20180509
  Serious: No
  Sender: FDA-Public Use
  Company Number: US-BIOGEN-2017BI00502128

PATIENT
  Sex: Female

DRUGS (1)
  1. ZINBRYTA [Suspect]
     Active Substance: DACLIZUMAB
     Indication: MULTIPLE SCLEROSIS
     Route: 058
     Dates: start: 20170929, end: 20171222

REACTIONS (5)
  - Blood pressure normal [Unknown]
  - Fatigue [Unknown]
  - Cold sweat [Unknown]
  - Heart rate normal [Unknown]
  - Chest pain [Unknown]
